FAERS Safety Report 24831272 (Version 1)
Quarter: 2025Q1

REPORT INFORMATION
  Report Type: Spontaneous
  Country: US (occurrence: US)
  Receive Date: 20250110
  Receipt Date: 20250110
  Transmission Date: 20250409
  Serious: Yes (Other)
  Sender: SAMSUNG BIOEPIS
  Company Number: US-SAMSUNG BIOEPIS-SB-2025-00171

PATIENT
  Age: 47 Year
  Sex: Female

DRUGS (4)
  1. INFLIXIMAB [Suspect]
     Active Substance: INFLIXIMAB
     Indication: Colitis ulcerative
  2. INFLIXIMAB [Suspect]
     Active Substance: INFLIXIMAB
  3. ADALIMUMAB [Suspect]
     Active Substance: ADALIMUMAB
     Indication: Colitis ulcerative
  4. AZATHIOPRINE [Suspect]
     Active Substance: AZATHIOPRINE
     Indication: Colitis ulcerative

REACTIONS (6)
  - Pneumonitis [Unknown]
  - Lymphoproliferative disorder [Unknown]
  - Colitis [Unknown]
  - Drug specific antibody present [Unknown]
  - Therapeutic product effect decreased [Unknown]
  - Drug level decreased [Unknown]
